FAERS Safety Report 6583443-X (Version None)
Quarter: 2010Q1

REPORT INFORMATION
  Report Type: 
  Country: None (occurrence: None)
  Receive Date: 20100216
  Receipt Date: 20100208
  Transmission Date: 20100710
  Serious: Yes (Hospitalization)
  Sender: FDA-Public Use
  Company Number: IT-TEVA-223981ISR

PATIENT
  Sex: Female

DRUGS (8)
  1. VINCRISTINE [Suspect]
     Indication: NON-HODGKIN'S LYMPHOMA
     Route: 042
     Dates: start: 20090925, end: 20090926
  2. CYCLOPHOSPHAMIDE [Suspect]
     Indication: NON-HODGKIN'S LYMPHOMA
     Route: 042
     Dates: start: 20090925, end: 20090925
  3. DOXORUBICIN HCL [Suspect]
     Indication: NON-HODGKIN'S LYMPHOMA
     Route: 042
     Dates: start: 20090925, end: 20090925
  4. METHYLPREDNISOLONE SODIUM SUCCINATE [Concomitant]
     Route: 042
     Dates: start: 20090925, end: 20090928
  5. METHYLPREDNISOLONE [Concomitant]
     Route: 042
  6. ENOXAPARIN SODIUM [Concomitant]
     Route: 042
     Dates: start: 20090921, end: 20091001
  7. OMEPRAZOLE [Concomitant]
     Route: 048
     Dates: start: 20090921, end: 20090930
  8. LAMIVUDINE [Concomitant]
     Route: 048
     Dates: start: 20090924, end: 20090930

REACTIONS (1)
  - CYTOMEGALOVIRUS INFECTION [None]
